FAERS Safety Report 24928611 (Version 2)
Quarter: 2025Q3

REPORT INFORMATION
  Report Type: Spontaneous
  Country: TR (occurrence: TR)
  Receive Date: 20250205
  Receipt Date: 20250730
  Transmission Date: 20251021
  Serious: Yes (Other)
  Sender: NOVO NORDISK
  Company Number: TR-NOVOPROD-1362238

PATIENT
  Age: 369 Month
  Sex: Female
  Weight: 75 kg

DRUGS (3)
  1. SAXENDA [Suspect]
     Active Substance: LIRAGLUTIDE
     Indication: Product used for unknown indication
     Dosage: 1.8 MG, QD
  2. DESLORATADINE\MONTELUKAST SODIUM [Concomitant]
     Active Substance: DESLORATADINE\MONTELUKAST SODIUM
     Indication: Product used for unknown indication
  3. LEVETIRACETAM [Concomitant]
     Active Substance: LEVETIRACETAM
     Indication: Product used for unknown indication

REACTIONS (3)
  - Abortion induced [Unknown]
  - Nausea [Unknown]
  - Maternal exposure during pregnancy [Recovered/Resolved]
